FAERS Safety Report 18423606 (Version 2)
Quarter: 2024Q2

REPORT INFORMATION
  Report Type: Spontaneous
  Country: PL (occurrence: PL)
  Receive Date: 20201024
  Receipt Date: 20240410
  Transmission Date: 20240716
  Serious: Yes (Other)
  Sender: FDA-Public Use
  Company Number: PL-ACCORD-206041

PATIENT
  Age: 72 Year
  Sex: Female

DRUGS (3)
  1. DOCETAXEL [Suspect]
     Active Substance: DOCETAXEL\DOCETAXEL ANHYDROUS
     Indication: Intestinal metastasis
  2. PERTUZUMAB [Suspect]
     Active Substance: PERTUZUMAB
     Indication: Intestinal metastasis
  3. TRASTUZUMAB [Suspect]
     Active Substance: TRASTUZUMAB
     Indication: Intestinal metastasis

REACTIONS (4)
  - Off label use [Unknown]
  - Polyneuropathy [Recovered/Resolved]
  - Colon neoplasm [Recovered/Resolved]
  - Condition aggravated [Recovered/Resolved]
